FAERS Safety Report 8227717-5 (Version None)
Quarter: 2012Q1

REPORT INFORMATION
  Report Type: 
  Country: None (occurrence: None)
  Receive Date: 20120322
  Receipt Date: 20120313
  Transmission Date: 20120608
  Serious: Yes (Death, Life-Threatening)
  Sender: FDA-Public Use
  Company Number: JP-GENZYME-THYM-1003171

PATIENT
  Age: 17 Year
  Sex: Male
  Weight: 48 kg

DRUGS (11)
  1. AMIKACIN SULFATE [Concomitant]
     Indication: INFECTION PROPHYLAXIS
     Dosage: UNK
     Route: 065
     Dates: start: 20091214, end: 20091214
  2. CEFOPERAZONE SODIUM [Concomitant]
     Indication: INFECTION PROPHYLAXIS
     Dosage: UNK
     Route: 065
     Dates: start: 20091214, end: 20100114
  3. MYCOPHENOLATE MOFETIL [Concomitant]
     Indication: ACUTE GRAFT VERSUS HOST DISEASE
     Dosage: UNK
     Route: 065
     Dates: start: 20091202, end: 20091224
  4. THYMOGLOBULIN [Suspect]
     Indication: ACUTE GRAFT VERSUS HOST DISEASE
     Dosage: 125 MG, QD
     Route: 042
     Dates: start: 20091214, end: 20091214
  5. THYMOGLOBULIN [Suspect]
     Dosage: 50 MG, QD
     Route: 042
     Dates: start: 20091221, end: 20091221
  6. TACROLIMUS [Concomitant]
     Indication: BONE MARROW CONDITIONING REGIMEN
     Dosage: UNK
     Route: 065
     Dates: start: 20091020, end: 20091219
  7. CARBENIN [Concomitant]
     Indication: INFECTION PROPHYLAXIS
     Dosage: UNK
     Route: 065
     Dates: start: 20091214, end: 20091216
  8. CEFTAZIDIME [Concomitant]
     Indication: INFECTION PROPHYLAXIS
     Dosage: UNK
     Route: 065
     Dates: start: 20091214, end: 20091214
  9. ACYCLOVIR [Concomitant]
     Indication: INFECTION PROPHYLAXIS
     Dosage: UNK
     Route: 065
     Dates: start: 20091214, end: 20100104
  10. CYCLOSPORINE [Concomitant]
     Indication: PROPHYLAXIS
     Dosage: UNK
     Route: 065
     Dates: start: 20091228, end: 20100101
  11. SODIUM BICARBONATE [Concomitant]
     Indication: RENAL FAILURE
     Dosage: UNK
     Route: 065
     Dates: start: 20100110, end: 20100123

REACTIONS (10)
  - RENAL FAILURE [None]
  - CARDIAC FAILURE [None]
  - ASCITES [None]
  - VENOOCCLUSIVE LIVER DISEASE [None]
  - HAEMORRHAGE [None]
  - MULTI-ORGAN FAILURE [None]
  - GASTROINTESTINAL OEDEMA [None]
  - FEBRILE NEUTROPENIA [None]
  - DIARRHOEA [None]
  - C-REACTIVE PROTEIN INCREASED [None]
